FAERS Safety Report 9558761 (Version 1)
Quarter: 2013Q3

REPORT INFORMATION
  Report Type: Spontaneous
  Country: US (occurrence: US)
  Receive Date: 20130926
  Receipt Date: 20130926
  Transmission Date: 20140515
  Serious: No
  Sender: FDA-Public Use
  Company Number: US-BIOGENIDEC-2013BI047155

PATIENT
  Age: 60 Year
  Sex: Female

DRUGS (4)
  1. TECFIDERA [Suspect]
     Indication: PRODUCT USED FOR UNKNOWN INDICATION
  2. GABAPENTIN [Concomitant]
  3. OXYCODONE- ACETAMINOPHEN [Concomitant]
  4. OXCARBAZEPINE [Concomitant]

REACTIONS (2)
  - Diarrhoea [Unknown]
  - Pruritus [Unknown]
